FAERS Safety Report 7236792-6 (Version None)
Quarter: 2011Q1

REPORT INFORMATION
  Report Type: 
  Country: None (occurrence: None)
  Receive Date: 20110120
  Receipt Date: 20110106
  Transmission Date: 20110831
  Serious: Yes (Other)
  Sender: FDA-Public Use
  Company Number: GB-BAYER-2010-008762

PATIENT

DRUGS (1)
  1. NAPROXEN SODIUM [Suspect]
     Dosage: 500 MG, BID
     Route: 048

REACTIONS (10)
  - DUODENAL ULCER [None]
  - EROSIVE DUODENITIS [None]
  - ABDOMINAL PAIN UPPER [None]
  - ABDOMINAL PAIN [None]
  - ABDOMINAL DISCOMFORT [None]
  - GASTRITIS EROSIVE [None]
  - LIVER FUNCTION TEST ABNORMAL [None]
  - OESOPHAGOGASTRODUODENOSCOPY [None]
  - GASTRIC ULCER [None]
  - VOMITING [None]
